FAERS Safety Report 19235112 (Version 2)
Quarter: 2021Q4

REPORT INFORMATION
  Report Type: Report from Study
  Country: US (occurrence: US)
  Receive Date: 20210509
  Receipt Date: 20211216
  Transmission Date: 20220303
  Serious: Yes (Death)
  Sender: FDA-Public Use
  Company Number: US-NOVARTISPH-NVSC2021US103539

PATIENT
  Sex: Female
  Weight: 59.8 kg

DRUGS (1)
  1. GLEEVEC [Suspect]
     Active Substance: IMATINIB MESYLATE
     Indication: Chronic myeloid leukaemia
     Dosage: 400 MG
     Route: 048
     Dates: start: 20071001

REACTIONS (2)
  - Death [Fatal]
  - Hypomagnesaemia [Unknown]

NARRATIVE: CASE EVENT DATE: 20180101
